FAERS Safety Report 15721266 (Version 2)
Quarter: 2019Q4

REPORT INFORMATION
  Report Type: Report from Study
  Country: US (occurrence: US)
  Receive Date: 20181214
  Receipt Date: 20191224
  Transmission Date: 20200122
  Serious: Yes (Hospitalization, Other)
  Sender: FDA-Public Use
  Company Number: US-ROCHE-2226436

PATIENT
  Age: 57 Year
  Sex: Female
  Weight: 104.42 kg

DRUGS (1)
  1. OCREVUS [Suspect]
     Active Substance: OCRELIZUMAB
     Indication: MULTIPLE SCLEROSIS
     Dosage: DATES OF OCRALIZUMAB INFUSION RECEIVED: 06/AUG/2018, 09/JAN/2019, 21/JAN/2019, 5/JUL/2019, 13/DEC/20
     Route: 065
     Dates: start: 20180119

REACTIONS (7)
  - Muscular weakness [Unknown]
  - Nephrolithiasis [Unknown]
  - Urinary tract infection [Unknown]
  - Multiple sclerosis relapse [Unknown]
  - Fall [Unknown]
  - Stress [Not Recovered/Not Resolved]
  - Pyrexia [Unknown]

NARRATIVE: CASE EVENT DATE: 201809
